FAERS Safety Report 11710309 (Version 2)
Quarter: 2015Q4

REPORT INFORMATION
  Report Type: Spontaneous
  Country: US (occurrence: US)
  Receive Date: 20151104
  Receipt Date: 20151110
  Transmission Date: 20160304
  Serious: No
  Sender: FDA-Public Use
  Company Number: US-ELI_LILLY_AND_COMPANY-US201103001868

PATIENT
  Sex: Female

DRUGS (8)
  1. FORTEO [Suspect]
     Active Substance: TERIPARATIDE
     Dosage: 20 UG, QD
     Route: 065
  2. CALCIUM [Concomitant]
     Active Substance: CALCIUM
     Route: 065
  3. FORTEO [Suspect]
     Active Substance: TERIPARATIDE
     Dosage: 20 UG, QD
     Route: 065
  4. CALCIUM [Concomitant]
     Active Substance: CALCIUM
     Route: 065
  5. FORTEO [Suspect]
     Active Substance: TERIPARATIDE
     Dosage: 20 UG, DAILY (1/D)
     Route: 065
  6. FORTEO [Suspect]
     Active Substance: TERIPARATIDE
     Indication: OSTEOPOROSIS
     Dosage: 20 UG, DAILY (1/D)
     Route: 065
     Dates: start: 20110106
  7. FORTEO [Suspect]
     Active Substance: TERIPARATIDE
     Dosage: 20 UG, QOD
     Route: 065
  8. VITAMIN D [Concomitant]
     Active Substance: CHOLECALCIFEROL

REACTIONS (8)
  - Injection site bruising [Unknown]
  - Constipation [Unknown]
  - Urinary tract infection [Unknown]
  - Fatigue [Unknown]
  - Drug dose omission [Unknown]
  - Apathy [Unknown]
  - Blood calcium increased [Not Recovered/Not Resolved]
  - Pain in extremity [Not Recovered/Not Resolved]
